FAERS Safety Report 4752722-0 (Version None)
Quarter: 2005Q3

REPORT INFORMATION
  Report Type: 
  Country: None (occurrence: None)
  Receive Date: 20050823
  Receipt Date: 20050513
  Transmission Date: 20060218
  Serious: Yes (Other)
  Sender: FDA-Public Use
  Company Number: 2005075652

PATIENT
  Sex: Male
  Weight: 92.9874 kg

DRUGS (8)
  1. NORVASC [Suspect]
     Indication: HYPERTENSION
     Dosage: 5 MG (5 MG,DAILY INTERVAL: EVERY DAY), ORAL
     Route: 048
  2. CELEBREX [Concomitant]
  3. BEXTRA [Concomitant]
  4. ATENOLOL [Concomitant]
  5. HYTRIN [Concomitant]
  6. MAXZIDE [Concomitant]
  7. RESTORIL [Concomitant]
  8. VIAGRA [Concomitant]

REACTIONS (1)
  - ATRIAL FIBRILLATION [None]
